FAERS Safety Report 7644790-3 (Version None)
Quarter: 2011Q3

REPORT INFORMATION
  Report Type: 
  Country: None (occurrence: None)
  Receive Date: 20110729
  Receipt Date: 20110721
  Transmission Date: 20111222
  Serious: Yes (Hospitalization, Other)
  Sender: FDA-Public Use
  Company Number: CA-CELGENEUS-028-21880-11070761

PATIENT
  Sex: Male

DRUGS (12)
  1. ASPIRIN [Concomitant]
     Indication: PROPHYLAXIS
     Dosage: 81 MILLIGRAM
     Route: 065
  2. HYDROMORPHONE HCL [Concomitant]
     Dosage: 2 MILLIGRAM
     Route: 048
  3. NEUPOGEN [Concomitant]
     Dosage: 1 MILLILITER
     Route: 030
  4. DEXAMETHASONE [Concomitant]
     Dosage: 5 MILLIGRAM
     Route: 048
  5. MORPHINE [Concomitant]
     Route: 065
  6. HYDROMORPHONE HCL [Concomitant]
     Dosage: 3 MILLIGRAM
     Route: 048
  7. INNOHEP [Concomitant]
     Dosage: 100000 MILLIGRAM
     Route: 058
  8. ATIVAN [Concomitant]
     Dosage: 1 MILLIGRAM
     Route: 065
  9. EPREX [Concomitant]
     Dosage: 60,000 UNIT
     Route: 058
  10. PAMIDRONATE DISODIUM [Concomitant]
     Dosage: 90 MILLIGRAM
     Route: 041
     Dates: end: 20110603
  11. REVLIMID [Suspect]
     Indication: MULTIPLE MYELOMA
     Dosage: 25 MILLIGRAM
     Route: 048
     Dates: start: 20110404
  12. REVLIMID [Suspect]
     Dosage: 15 MILLIGRAM
     Route: 048
     Dates: start: 20110706

REACTIONS (5)
  - PAIN IN EXTREMITY [None]
  - THROMBOCYTOPENIA [None]
  - ANAEMIA [None]
  - SOMNOLENCE [None]
  - SEPSIS [None]
